FAERS Safety Report 5966179-5 (Version None)
Quarter: 2008Q4

REPORT INFORMATION
  Report Type: 
  Country: None (occurrence: None)
  Receive Date: 20081125
  Receipt Date: 20081119
  Transmission Date: 20090506
  Serious: Yes (Other)
  Sender: FDA-Public Use
  Company Number: GB-BAXTER-2008BH012683

PATIENT
  Age: 55 Year
  Sex: Male

DRUGS (1)
  1. CYCLOPHOSPHAMIDE [Suspect]
     Indication: VASCULITIS
     Dosage: DOSE UNIT:UNKNOWN
     Route: 065

REACTIONS (1)
  - TESTICULAR FAILURE [None]
